FAERS Safety Report 7194794-2 (Version None)
Quarter: 2010Q4

REPORT INFORMATION
  Report Type: 
  Country: None (occurrence: None)
  Receive Date: 20101223
  Receipt Date: 20101214
  Transmission Date: 20110411
  Serious: Yes (Hospitalization, Other)
  Sender: FDA-Public Use
  Company Number: JP-ELI_LILLY_AND_COMPANY-JP201012000057

PATIENT
  Age: 41 Year
  Sex: Male

DRUGS (5)
  1. ZYPREXA [Suspect]
     Indication: SCHIZOPHRENIA
     Dosage: 15 MG, DAILY (1/D)
     Route: 048
     Dates: start: 20070301, end: 20100602
  2. ZYPREXA [Suspect]
     Dosage: 10 MG, DAILY (1/D)
     Route: 048
     Dates: start: 20100601, end: 20100101
  3. TASMOLIN [Concomitant]
     Dosage: 2 MG, UNKNOWN
     Route: 048
     Dates: start: 20030601
  4. RIVOTRIL [Concomitant]
     Dosage: UNK, UNKNOWN
     Route: 048
     Dates: start: 20070301
  5. ROHYPNOL [Concomitant]
     Indication: INSOMNIA
     Dosage: 2 MG, UNKNOWN
     Route: 048
     Dates: start: 20070301

REACTIONS (2)
  - ELECTROCARDIOGRAM QT PROLONGED [None]
  - SCHIZOPHRENIA [None]
